FAERS Safety Report 14137514 (Version 1)
Quarter: 2017Q4

REPORT INFORMATION
  Report Type: Spontaneous
  Country: CN (occurrence: CN)
  Receive Date: 20171027
  Receipt Date: 20171027
  Transmission Date: 20180321
  Serious: Yes (Hospitalization)
  Sender: FDA-Public Use
  Company Number: CN-EMD SERONO-8196632

PATIENT
  Age: 40 Year
  Sex: Female

DRUGS (6)
  1. CLOMIPHENE CITRATE. [Suspect]
     Active Substance: CLOMIPHENE CITRATE
     Indication: OVULATION INDUCTION
     Dates: start: 201705
  2. GONAL-F [Suspect]
     Active Substance: FOLLITROPIN
     Indication: OVULATION INDUCTION
     Dosage: FOR 3 TO 5 DAYS
     Dates: start: 201705
  3. GANIRELIX [Suspect]
     Active Substance: GANIRELIX
     Indication: OVULATION INDUCTION
     Dosage: FOR ONE DAY
     Dates: start: 201706
  4. GONAL-F [Suspect]
     Active Substance: FOLLITROPIN
     Dosage: FOR 3-5 DAYS
     Dates: start: 201706
  5. CLOMIPHENE CITRATE. [Suspect]
     Active Substance: CLOMIPHENE CITRATE
     Dates: start: 201706
  6. CETROTIDE [Suspect]
     Active Substance: CETRORELIX ACETATE
     Indication: OVULATION INDUCTION
     Dosage: FOR ONE DAY
     Dates: start: 201705

REACTIONS (1)
  - Protein urine present [Unknown]

NARRATIVE: CASE EVENT DATE: 20171016
